FAERS Safety Report 5054731-3 (Version None)
Quarter: 2006Q2

REPORT INFORMATION
  Report Type: 
  Country: None (occurrence: None)
  Receive Date: 20060614
  Receipt Date: 20060215
  Transmission Date: 20061013
  Serious: Yes (Other)
  Sender: FDA-Public Use
  Company Number: US200601005135

PATIENT
  Age: 70 Year
  Sex: Male
  Weight: 89.8 kg

DRUGS (4)
  1. CIALIS [Suspect]
     Indication: ERECTILE DYSFUNCTION
     Dosage: 20 MG, ORAL
     Route: 048
  2. DILTIAZEM [Concomitant]
  3. LISINOPRIL [Concomitant]
  4. RITALIN - SLOW RELEASE (METHYLPHENIDATE HYDROCHLORIDE) [Concomitant]

REACTIONS (8)
  - ASTHENIA [None]
  - BLOOD CREATININE ABNORMAL [None]
  - BLOOD PRESSURE DECREASED [None]
  - DRUG INTERACTION [None]
  - MUSCLE SPASMS [None]
  - MUSCLE TIGHTNESS [None]
  - PAIN IN EXTREMITY [None]
  - PYREXIA [None]
